FAERS Safety Report 14146941 (Version 2)
Quarter: 2018Q2

REPORT INFORMATION
  Report Type: Report from Study
  Country: US (occurrence: US)
  Receive Date: 20171101
  Receipt Date: 20180427
  Transmission Date: 20180711
  Serious: Yes (Other)
  Sender: FDA-Public Use
  Company Number: PHEH2017US034781

PATIENT
  Sex: Female

DRUGS (1)
  1. COSENTYX [Suspect]
     Active Substance: SECUKINUMAB
     Indication: PRODUCT USED FOR UNKNOWN INDICATION
     Dosage: 300 MG, QMO
     Route: 058

REACTIONS (7)
  - Psoriasis [Unknown]
  - Influenza like illness [Unknown]
  - Abscess [Unknown]
  - Diarrhoea haemorrhagic [Unknown]
  - Pyrexia [Unknown]
  - Hordeolum [Unknown]
  - Malaise [Unknown]
